FAERS Safety Report 8506761-4 (Version None)
Quarter: 2012Q3

REPORT INFORMATION
  Report Type: 
  Country: None (occurrence: None)
  Receive Date: 20120712
  Receipt Date: 20120706
  Transmission Date: 20120928
  Serious: No
  Sender: FDA-Public Use
  Company Number: US-PFIZER INC-2012162425

PATIENT
  Sex: Female

DRUGS (2)
  1. LYRICA [Suspect]
     Dosage: UNK
     Dates: start: 20120201, end: 20120512
  2. CAFFEINE [Suspect]

REACTIONS (4)
  - OVERDOSE [None]
  - ANXIETY [None]
  - PARAESTHESIA [None]
  - VISION BLURRED [None]
